FAERS Safety Report 24778336 (Version 1)
Quarter: 2024Q4

REPORT INFORMATION
  Report Type: Report from Study
  Country: US (occurrence: US)
  Receive Date: 20241226
  Receipt Date: 20241226
  Transmission Date: 20250115
  Serious: Yes (Hospitalization, Other)
  Sender: NOVARTIS
  Company Number: US-002147023-NVSC2024US154399

PATIENT
  Age: 17 Year
  Sex: Female

DRUGS (3)
  1. ILARIS [Suspect]
     Active Substance: CANAKINUMAB
     Indication: Still^s disease
     Dosage: 300 MG, OTHER (EVERY 4 WEEKS)
     Route: 058
     Dates: start: 20191017
  2. ILARIS [Suspect]
     Active Substance: CANAKINUMAB
     Dosage: 180 MG, OTHER (EVERY 4 WEEKS)
     Route: 058
  3. ILARIS [Suspect]
     Active Substance: CANAKINUMAB
     Dosage: 180 MG, OTHER (EVERY 8 WEEKS)
     Route: 058
     Dates: start: 20171107

REACTIONS (8)
  - Pneumonia [Unknown]
  - Psoriasis [Unknown]
  - Vitamin D deficiency [Unknown]
  - Anaemia [Unknown]
  - Abdominal distension [Unknown]
  - Bowel movement irregularity [Unknown]
  - Abdominal pain [Unknown]
  - Product prescribing issue [Unknown]

NARRATIVE: CASE EVENT DATE: 20240625
